FAERS Safety Report 18331757 (Version 1)
Quarter: 2020Q3

REPORT INFORMATION
  Report Type: Report from Study
  Country: US (occurrence: US)
  Receive Date: 20200930
  Receipt Date: 20200930
  Transmission Date: 20201103
  Serious: Yes (Hospitalization, Other)
  Sender: FDA-Public Use
  Company Number: US-JNJFOC-20200940150

PATIENT
  Sex: Female

DRUGS (1)
  1. STELARA [Suspect]
     Active Substance: USTEKINUMAB
     Indication: CROHN^S DISEASE
     Route: 042

REACTIONS (7)
  - Haemorrhage [Recovered/Resolved]
  - Dizziness [Unknown]
  - Thrombosis [Unknown]
  - Nausea [Unknown]
  - Infusion related reaction [Unknown]
  - Transient ischaemic attack [Unknown]
  - Hyperhidrosis [Unknown]
